FAERS Safety Report 15907676 (Version 1)
Quarter: 2019Q1

REPORT INFORMATION
  Report Type: Spontaneous
  Country: US (occurrence: US)
  Receive Date: 20190204
  Receipt Date: 20190204
  Transmission Date: 20190417
  Serious: Yes (Hospitalization)
  Sender: FDA-Public Use
  Company Number: None

PATIENT
  Age: 72 Year
  Sex: Female

DRUGS (14)
  1. PREDNISONE. [Concomitant]
     Active Substance: PREDNISONE
  2. RITUXIMAB. [Concomitant]
     Active Substance: RITUXIMAB
  3. ACTEMRA [Suspect]
     Active Substance: TOCILIZUMAB
     Indication: RHEUMATOID ARTHRITIS
     Dosage: ?          OTHER FREQUENCY:EVERY FOUR WEEKS;?
     Route: 041
     Dates: start: 20141218, end: 20181018
  4. ALBUTEROL. [Concomitant]
     Active Substance: ALBUTEROL
  5. METHOTREXATE. [Concomitant]
     Active Substance: METHOTREXATE
  6. LEVOTHYROXINE. [Concomitant]
     Active Substance: LEVOTHYROXINE
  7. RANITIDINE. [Concomitant]
     Active Substance: RANITIDINE
  8. ZOLPIDEM [Concomitant]
     Active Substance: ZOLPIDEM\ZOLPIDEM TARTRATE
  9. BUDESONIDE (INHALATION) [Concomitant]
  10. CETIRIZINE [Concomitant]
     Active Substance: CETIRIZINE HYDROCHLORIDE
  11. FOLIC ACID. [Concomitant]
     Active Substance: FOLIC ACID
  12. BENZONATATE. [Concomitant]
     Active Substance: BENZONATATE
  13. CYCLOBENZAPRINE. [Concomitant]
     Active Substance: CYCLOBENZAPRINE
  14. TRIAMTERENE AND HYDROCHLOROTHIAZIDE [Concomitant]
     Active Substance: HYDROCHLOROTHIAZIDE\TRIAMTERENE

REACTIONS (6)
  - Diverticulitis [None]
  - Abdominal abscess [None]
  - Pulmonary sarcoidosis [None]
  - Large intestine perforation [None]
  - Fistula [None]
  - Fallopian tube perforation [None]

NARRATIVE: CASE EVENT DATE: 20181223
